FAERS Safety Report 18600299 (Version 1)
Quarter: 2020Q4

REPORT INFORMATION
  Report Type: Spontaneous
  Country: US (occurrence: US)
  Receive Date: 20201210
  Receipt Date: 20201210
  Transmission Date: 20210114
  Serious: Yes (Hospitalization)
  Sender: FDA-Public Use
  Company Number: None

PATIENT
  Sex: Female
  Weight: 56.3 kg

DRUGS (5)
  1. CYTARABINE. [Suspect]
     Active Substance: CYTARABINE
  2. PREDNISOLONE. [Concomitant]
     Active Substance: PREDNISOLONE
  3. DAUNORUBICIN [Concomitant]
     Active Substance: DAUNORUBICIN
  4. ONCASPAR [Concomitant]
     Active Substance: PEGASPARGASE
  5. VINCRISTINE SULFATE. [Concomitant]
     Active Substance: VINCRISTINE SULFATE

REACTIONS (3)
  - Lower respiratory tract infection fungal [None]
  - Pneumonia [None]
  - Toxicity to various agents [None]

NARRATIVE: CASE EVENT DATE: 20201129
